FAERS Safety Report 4487359-4 (Version None)
Quarter: 2004Q4

REPORT INFORMATION
  Report Type: 
  Country: None (occurrence: None)
  Receive Date: 20041027
  Receipt Date: 20030605
  Transmission Date: 20050328
  Serious: Yes (Disabling)
  Sender: FDA-Public Use
  Company Number: US-MERCK-0306USA00848

PATIENT
  Age: 50 Year
  Sex: Female

DRUGS (2)
  1. VIOXX [Suspect]
     Indication: PAIN
     Route: 048
     Dates: start: 20000801
  2. VIOXX [Suspect]
     Route: 048
     Dates: start: 20030509

REACTIONS (6)
  - ADVERSE EVENT [None]
  - LOCALISED OSTEOARTHRITIS [None]
  - OEDEMA [None]
  - OSTEOARTHRITIS [None]
  - PAIN IN EXTREMITY [None]
  - TRANSIENT ISCHAEMIC ATTACK [None]
